FAERS Safety Report 10045198 (Version 2)
Quarter: 2014Q2

REPORT INFORMATION
  Report Type: Report from Study
  Country: BR (occurrence: BR)
  Receive Date: 20140328
  Receipt Date: 20140506
  Transmission Date: 20141212
  Serious: Yes (Other)
  Sender: FDA-Public Use
  Company Number: CHNY2014BR000476

PATIENT
  Sex: Female
  Weight: 48 kg

DRUGS (3)
  1. NICOTINELL TTS [Suspect]
     Indication: SMOKING CESSATION THERAPY
     Dosage: 21 MG, QD
     Route: 062
     Dates: start: 20140105
  2. NICOTINELL TTS [Suspect]
     Dosage: UNK, FORMULATION: 14MG
  3. NICOTINELL TTS [Suspect]
     Dosage: UNK, FORMULATION: 7MG

REACTIONS (4)
  - Hepatic cancer [Unknown]
  - Limb deformity [Unknown]
  - Nicotine dependence [Unknown]
  - Drug ineffective [Unknown]
